FAERS Safety Report 7129159-2 (Version None)
Quarter: 2010Q4

REPORT INFORMATION
  Report Type: 
  Country: None (occurrence: None)
  Receive Date: 20101130
  Receipt Date: 20101122
  Transmission Date: 20110411
  Serious: Yes (Other)
  Sender: FDA-Public Use
  Company Number: US-SANOFI-AVENTIS-2010SA071240

PATIENT
  Age: 8 Year
  Sex: Male

DRUGS (3)
  1. SOLOSTAR [Suspect]
     Dates: start: 20100101
  2. LANTUS [Suspect]
     Dosage: DOSE:11 UNIT(S)
     Route: 058
     Dates: start: 20100101
  3. NOVOLOG [Suspect]

REACTIONS (2)
  - HYPERGLYCAEMIA [None]
  - PRODUCT QUALITY ISSUE [None]
